FAERS Safety Report 17200475 (Version 1)
Quarter: 2019Q4

REPORT INFORMATION
  Report Type: Spontaneous
  Country: FR (occurrence: FR)
  Receive Date: 20191226
  Receipt Date: 20191226
  Transmission Date: 20200122
  Serious: Yes (Hospitalization)
  Sender: FDA-Public Use
  Company Number: FR-TEVA-2019-FR-1156995

PATIENT
  Age: 79 Year
  Sex: Male
  Weight: 74 kg

DRUGS (8)
  1. SELINCRO 18 MG, COMPRIM? PELLICUL? [Suspect]
     Active Substance: NALMEFENE HYDROCHLORIDE DIHYDRATE
     Indication: ALCOHOLISM
     Dosage: 18 MILLIGRAM
     Route: 048
     Dates: start: 201907
  2. ARCOXIA [Suspect]
     Active Substance: ETORICOXIB
     Indication: OSTEOARTHRITIS
     Dosage: 30 MILLIGRAM
     Route: 048
     Dates: start: 20190828
  3. DOLIPRANE [Concomitant]
     Active Substance: ACETAMINOPHEN
  4. ZOPICLONE [Suspect]
     Active Substance: ZOPICLONE
     Indication: SLEEP DISORDER
     Dosage: 7.5 MILLIGRAM
     Route: 048
     Dates: start: 20190828
  5. IRBESARTAN. [Suspect]
     Active Substance: IRBESARTAN
     Indication: HYPERTENSION
     Dosage: 150 MILLIGRAM
     Route: 048
     Dates: start: 20190828
  6. ESOMEPRAZOLE. [Suspect]
     Active Substance: ESOMEPRAZOLE MAGNESIUM
     Indication: PRODUCT USED FOR UNKNOWN INDICATION
     Dosage: UNSPECIFIED
     Route: 048
     Dates: start: 20190828
  7. CITALOPRAM (CHLORHYDRATE DE) [Suspect]
     Active Substance: CITALOPRAM HYDROCHLORIDE
     Indication: PRODUCT USED FOR UNKNOWN INDICATION
     Dosage: 20 MILLIGRAM
     Route: 048
     Dates: start: 20190828
  8. LOXEN L P 50 MG, G?LULE ? LIB?RATION PROLONG?E [Suspect]
     Active Substance: NICARDIPINE HYDROCHLORIDE
     Indication: HYPERTENSION
     Dosage: 100 MILLIGRAM
     Route: 048
     Dates: start: 20190828

REACTIONS (1)
  - Antiphospholipid antibodies positive [Not Recovered/Not Resolved]

NARRATIVE: CASE EVENT DATE: 20191029
